FAERS Safety Report 25747481 (Version 3)
Quarter: 2025Q4

REPORT INFORMATION
  Report Type: Report from Study
  Country: CO (occurrence: CO)
  Receive Date: 20250901
  Receipt Date: 20251015
  Transmission Date: 20260117
  Serious: Yes (Death, Hospitalization)
  Sender: ABBVIE
  Company Number: CO-ABBVIE-6436162

PATIENT
  Age: 82 Year
  Sex: Female

DRUGS (3)
  1. VENCLEXTA [Suspect]
     Active Substance: VENETOCLAX
     Indication: Acute myeloid leukaemia
     Dosage: FORM STRENGTH: 100 MG BOTTLE
     Route: 048
     Dates: start: 20230416, end: 20241212
  2. VENCLEXTA [Suspect]
     Active Substance: VENETOCLAX
     Indication: Acute myeloid leukaemia
     Dosage: FORM STRENGTH: 100 MG BOTTLE
     Route: 048
     Dates: end: 20250115
  3. AZACITIDINE [Suspect]
     Active Substance: AZACITIDINE
     Indication: Acute myeloid leukaemia
     Dosage: DOSE FORM: INJECTABLE SOLUTION
     Route: 058

REACTIONS (10)
  - General physical health deterioration [Fatal]
  - Hypoaesthesia [Not Recovered/Not Resolved]
  - Glossodynia [Not Recovered/Not Resolved]
  - Hypoaesthesia oral [Not Recovered/Not Resolved]
  - Speech disorder [Unknown]
  - Cough [Unknown]
  - Paraesthesia [Unknown]
  - Swollen tongue [Unknown]
  - Tongue disorder [Unknown]
  - Plasma cell myeloma [Unknown]

NARRATIVE: CASE EVENT DATE: 20250801
